FAERS Safety Report 4779488-2 (Version None)
Quarter: 2005Q3

REPORT INFORMATION
  Report Type: 
  Country: None (occurrence: None)
  Receive Date: 20050922
  Receipt Date: 20050111
  Transmission Date: 20060218
  Serious: Yes (Hospitalization, Other)
  Sender: FDA-Public Use
  Company Number: 2004082546

PATIENT
  Sex: Female
  Weight: 74.8435 kg

DRUGS (4)
  1. ZYRTEC [Suspect]
     Indication: HYPERSENSITIVITY
     Dosage: ORAL
     Route: 048
     Dates: start: 20030101, end: 20030101
  2. DICYCLOVERINE HYDROCHLORIDE (DICYCLOVERINE HYDROCHLORIDE) [Concomitant]
  3. ATENOLOL [Concomitant]
  4. DOXEPIN HCL [Concomitant]

REACTIONS (3)
  - EPISTAXIS [None]
  - HYPERTENSION [None]
  - NASAL DRYNESS [None]
